FAERS Safety Report 9885956 (Version 2)
Quarter: 2014Q1

REPORT INFORMATION
  Report Type: Spontaneous
  Country: FR (occurrence: FR)
  Receive Date: 20140210
  Receipt Date: 20140210
  Transmission Date: 20141002
  Serious: Yes (Hospitalization, Other)
  Sender: FDA-Public Use
  Company Number: PHHY2013FR117930

PATIENT
  Sex: Male

DRUGS (5)
  1. LEPONEX [Suspect]
     Indication: SCHIZOPHRENIA
     Dosage: 150 MG, BID
     Dates: start: 20130807, end: 20131015
  2. THERALENE [Concomitant]
     Dosage: UNK
  3. IMOVANE [Concomitant]
     Dosage: UNK
  4. TRANXENE [Concomitant]
     Dosage: UNK
  5. LEPTICUR [Concomitant]
     Dosage: UNK

REACTIONS (3)
  - Anal abscess [Recovered/Resolved]
  - Leukopenia [Recovered/Resolved]
  - Neutropenia [Recovered/Resolved]
